FAERS Safety Report 23654126 (Version 7)
Quarter: 2024Q4

REPORT INFORMATION
  Report Type: Report from Study
  Country: DE (occurrence: DE)
  Receive Date: 20240320
  Receipt Date: 20241001
  Transmission Date: 20250115
  Serious: Yes (Other)
  Sender: AEGERION
  Company Number: DE-AMRYT PHARMACEUTICALS DAC-AEGR006985

PATIENT

DRUGS (3)
  1. METRELEPTIN [Suspect]
     Active Substance: METRELEPTIN
     Indication: Familial partial lipodystrophy
     Dosage: 5.8 MILLIGRAM, QD
     Dates: start: 20230621
  2. METRELEPTIN [Suspect]
     Active Substance: METRELEPTIN
     Dosage: 5.8 MILLIGRAM, QD
     Route: 058
     Dates: start: 20220202, end: 202405
  3. LEVOTHYROXINE AND LIOTHYRONINE [LEVOTHYROXINE;LIOTHYRONINE] [Concomitant]
     Indication: Autoimmune thyroiditis
     Dosage: 100 MICROGRAM, QD
     Dates: start: 20220427

REACTIONS (3)
  - Abortion spontaneous [Recovered/Resolved with Sequelae]
  - Decreased appetite [Not Recovered/Not Resolved]
  - Maternal exposure during pregnancy [Unknown]

NARRATIVE: CASE EVENT DATE: 20240312
